FAERS Safety Report 10058473 (Version 1)
Quarter: 2014Q2

REPORT INFORMATION
  Report Type: Spontaneous
  Country: CA (occurrence: CA)
  Receive Date: 20140404
  Receipt Date: 20140404
  Transmission Date: 20141212
  Serious: Yes (Other)
  Sender: FDA-Public Use
  Company Number: CA-SA-2014SA037928

PATIENT
  Age: 21 Year
  Sex: Female
  Weight: 57 kg

DRUGS (4)
  1. RIFADIN [Suspect]
     Indication: ENDOCARDITIS
     Route: 048
     Dates: start: 20140314, end: 20140317
  2. CEFTRIAXONE [Concomitant]
     Indication: PROPHYLAXIS
     Route: 042
     Dates: start: 20140305
  3. GENTAMICIN [Concomitant]
     Indication: PROPHYLAXIS
     Route: 042
     Dates: start: 20140314, end: 20140316
  4. HEPARIN [Concomitant]
     Indication: PROPHYLAXIS
     Dosage: DOSE:5000 UNIT(S)
     Route: 058
     Dates: start: 20140316, end: 20140317

REACTIONS (2)
  - Neutropenia [Recovering/Resolving]
  - Off label use [Unknown]
